FAERS Safety Report 15775470 (Version 2)
Quarter: 2019Q1

REPORT INFORMATION
  Report Type: Spontaneous
  Country: CN (occurrence: CN)
  Receive Date: 20181231
  Receipt Date: 20190204
  Transmission Date: 20190417
  Serious: Yes (Hospitalization)
  Sender: FDA-Public Use
  Company Number: CN-ROCHE-2237548

PATIENT
  Age: 54 Year
  Sex: Female
  Weight: 46 kg

DRUGS (7)
  1. HERCEPTIN [Suspect]
     Active Substance: TRASTUZUMAB
     Indication: BREAST CANCER
     Dosage: INJECTION.
     Route: 041
     Dates: start: 20180915
  2. HERCEPTIN [Suspect]
     Active Substance: TRASTUZUMAB
     Dosage: INJECTION.
     Route: 041
     Dates: start: 20181204, end: 20181204
  3. CARBOPLATIN. [Suspect]
     Active Substance: CARBOPLATIN
     Dosage: INJECTION
     Route: 041
     Dates: start: 20181107, end: 20181107
  4. DOCETAXEL. [Suspect]
     Active Substance: DOCETAXEL
     Indication: BREAST CANCER
     Dosage: INJECTION
     Route: 041
     Dates: start: 20180915
  5. CARBOPLATIN. [Suspect]
     Active Substance: CARBOPLATIN
     Indication: BREAST CANCER
     Dosage: INJECTION
     Route: 041
     Dates: start: 20180915
  6. DOCETAXEL. [Suspect]
     Active Substance: DOCETAXEL
     Dosage: INJECTION
     Route: 041
     Dates: start: 20181107, end: 20181107
  7. HERCEPTIN [Suspect]
     Active Substance: TRASTUZUMAB
     Dosage: INJECTION.
     Route: 041
     Dates: start: 20181107, end: 20181107

REACTIONS (5)
  - Fatigue [Unknown]
  - Decreased appetite [Unknown]
  - Bone marrow failure [Recovering/Resolving]
  - Headache [Recovering/Resolving]
  - Gastrointestinal disorder [Recovering/Resolving]

NARRATIVE: CASE EVENT DATE: 20181114
